FAERS Safety Report 8955065 (Version 1)
Quarter: 2012Q4

REPORT INFORMATION
  Report Type: 
  Country: FR (occurrence: FR)
  Receive Date: 20121210
  Receipt Date: 20121210
  Transmission Date: 20130627
  Serious: Yes (Hospitalization)
  Sender: FDA-Public Use
  Company Number: FR-JNJFOC-20121203341

PATIENT
  Age: 84 Year
  Sex: Male

DRUGS (6)
  1. XARELTO [Suspect]
     Indication: CEREBROVASCULAR ACCIDENT PROPHYLAXIS
     Route: 048
     Dates: start: 20120827, end: 20120903
  2. XARELTO [Suspect]
     Indication: ATRIAL FIBRILLATION
     Route: 048
     Dates: start: 20120827, end: 20120903
  3. XARELTO [Suspect]
     Indication: ARRHYTHMIA
     Route: 048
     Dates: start: 20120827, end: 20120903
  4. ATENOLOL [Concomitant]
     Route: 065
  5. INDAPAMIDE [Concomitant]
     Route: 065
  6. SPIRONOLACTONE [Concomitant]
     Route: 065

REACTIONS (2)
  - Asthenia [Recovered/Resolved]
  - Melaena [Recovered/Resolved]
